FAERS Safety Report 4652201-5 (Version None)
Quarter: 2005Q2

REPORT INFORMATION
  Report Type: 
  Country: None (occurrence: None)
  Receive Date: 20050502
  Receipt Date: 20050426
  Transmission Date: 20051028
  Serious: Yes (Death, Hospitalization, Other)
  Sender: FDA-Public Use
  Company Number: 2005-04-0402

PATIENT
  Age: 58 Year
  Sex: Male
  Weight: 126 kg

DRUGS (5)
  1. PEG-INTRON [Suspect]
     Indication: HEPATITIS C
     Dosage: 150-75 UG SUBCUTANEOUS
     Route: 058
     Dates: start: 20041203, end: 20050407
  2. RIBAVIRIN [Suspect]
     Indication: HEPATITIS C
     Dosage: 1200 MG ORAL
     Route: 048
     Dates: start: 20041203, end: 20050407
  3. LASIX [Concomitant]
  4. ALDACTONE [Concomitant]
  5. POTASSIUM SUPPLEMENT (NOS) [Concomitant]

REACTIONS (10)
  - ABDOMINAL DISTENSION [None]
  - ASCITES [None]
  - BLOOD POTASSIUM DECREASED [None]
  - BLOOD SODIUM DECREASED [None]
  - DYSPNOEA [None]
  - HEPATIC FAILURE [None]
  - PANCYTOPENIA [None]
  - RENAL FAILURE [None]
  - SPEECH DISORDER [None]
  - WEIGHT INCREASED [None]
